FAERS Safety Report 11776635 (Version 1)
Quarter: 2015Q4

REPORT INFORMATION
  Report Type: Spontaneous
  Country: US (occurrence: None)
  Receive Date: 20151123
  Receipt Date: 20151123
  Transmission Date: 20160304
  Serious: No
  Sender: FDA-Public Use
  Company Number: None

PATIENT
  Age: 79 Year
  Sex: Female

DRUGS (1)
  1. PROLIA [Suspect]
     Active Substance: DENOSUMAB
     Dosage: EVERY 6 MONTHS
     Route: 058
     Dates: start: 20120424

REACTIONS (2)
  - Drug dose omission [None]
  - Malaise [None]

NARRATIVE: CASE EVENT DATE: 20151119
